FAERS Safety Report 10215537 (Version 1)
Quarter: 2014Q2

REPORT INFORMATION
  Report Type: Spontaneous
  Country: US (occurrence: US)
  Receive Date: 20140604
  Receipt Date: 20140604
  Transmission Date: 20141212
  Serious: No
  Sender: FDA-Public Use
  Company Number: US-BIOGENIDEC-2014BI052543

PATIENT
  Sex: Female

DRUGS (2)
  1. AVONEX [Suspect]
     Indication: MULTIPLE SCLEROSIS
     Route: 030
     Dates: start: 20101004, end: 20101231
  2. COPAXONE [Concomitant]

REACTIONS (10)
  - Multiple sclerosis [Unknown]
  - Cognitive disorder [Not Recovered/Not Resolved]
  - Optic neuritis [Not Recovered/Not Resolved]
  - Loss of control of legs [Recovered/Resolved]
  - Weight increased [Not Recovered/Not Resolved]
  - Mass [Unknown]
  - Hypersensitivity [Recovered/Resolved]
  - Drug ineffective [Recovered/Resolved]
  - Feeling abnormal [Not Recovered/Not Resolved]
  - Pyrexia [Recovered/Resolved]
